FAERS Safety Report 8111906-4 (Version None)
Quarter: 2012Q1

REPORT INFORMATION
  Report Type: 
  Country: None (occurrence: None)
  Receive Date: 20120203
  Receipt Date: 20110203
  Transmission Date: 20120608
  Serious: No
  Sender: FDA-Public Use
  Company Number: US-GLAXOSMITHKLINE-A0911697A

PATIENT
  Age: 55 Year
  Sex: Female

DRUGS (4)
  1. ARIXTRA [Suspect]
     Indication: HIP ARTHROPLASTY
     Dosage: 2.5MG PER DAY
     Route: 058
     Dates: start: 20110126
  2. MAXZIDE [Concomitant]
  3. MOBIC [Concomitant]
  4. ULTRAM [Concomitant]

REACTIONS (2)
  - PAIN IN EXTREMITY [None]
  - HYPOAESTHESIA ORAL [None]
